FAERS Safety Report 5824180-6 (Version None)
Quarter: 2008Q3

REPORT INFORMATION
  Report Type: 
  Country: None (occurrence: None)
  Receive Date: 20080721
  Receipt Date: 20080707
  Transmission Date: 20090109
  Serious: Yes (Other)
  Sender: FDA-Public Use
  Company Number: GXKR2008NL06302

PATIENT
  Age: 54 Year
  Sex: Male
  Weight: 128 kg

DRUGS (4)
  1. METOPROLOL SUCCINATE [Suspect]
     Dosage: 1 DF, QD, ORAL; , ORAL; 50 MG, ORAL
     Route: 048
     Dates: start: 20010605
  2. METOPROLOL SUCCINATE [Suspect]
     Dosage: 1 DF, QD, ORAL; , ORAL; 50 MG, ORAL
     Route: 048
     Dates: start: 20080101
  3. APROVEL (IRBESARTAN) FILM-COATED TABLET [Concomitant]
  4. CRESTOR (ROSUVASTATIN CALCIUM) FILM-COATED TABLET, 10 MG [Concomitant]

REACTIONS (3)
  - HEADACHE [None]
  - MENIERE'S DISEASE [None]
  - TINNITUS [None]
